FAERS Safety Report 4912249-X (Version None)
Quarter: 2006Q1

REPORT INFORMATION
  Report Type: 
  Country: None (occurrence: None)
  Receive Date: 20060215
  Receipt Date: 20051115
  Transmission Date: 20060701
  Serious: No
  Sender: FDA-Public Use
  Company Number: US-GLAXOSMITHKLINE-A0582415A

PATIENT
  Age: 76 Year
  Sex: Male

DRUGS (21)
  1. VALTREX [Suspect]
     Dosage: 500MG THREE TIMES PER DAY
     Route: 048
     Dates: start: 20051114
  2. OXYGEN [Concomitant]
  3. K-DUR 10 [Concomitant]
  4. LASIX [Concomitant]
  5. ALDACTONE [Concomitant]
  6. VASOTEC RPD [Concomitant]
  7. COREG [Concomitant]
  8. LIPITOR [Concomitant]
  9. DIGOXIN [Concomitant]
  10. PRILOSEC [Concomitant]
  11. PLAVIX [Concomitant]
  12. ASPIRIN [Concomitant]
  13. DETROL LA [Concomitant]
  14. NITROGLYCERIN [Concomitant]
  15. DILANTIN [Concomitant]
  16. NPH INSULIN [Concomitant]
  17. REGULAR INSULIN [Concomitant]
  18. MULTI-VITAMIN [Concomitant]
  19. XALATAN [Concomitant]
  20. SURFAK [Concomitant]
  21. LIDOCAINE [Concomitant]

REACTIONS (2)
  - EYE MOVEMENT DISORDER [None]
  - JAW DISORDER [None]
